FAERS Safety Report 15116489 (Version 1)
Quarter: 2018Q3

REPORT INFORMATION
  Report Type: Report from Study
  Country: US (occurrence: US)
  Receive Date: 20180706
  Receipt Date: 20180706
  Transmission Date: 20181010
  Serious: Yes (Hospitalization, Other)
  Sender: FDA-Public Use
  Company Number: US-JAZZ-2018-US-010225

PATIENT
  Age: 15 Year
  Sex: Female
  Weight: 50.2 kg

DRUGS (1)
  1. CPX?351 [Suspect]
     Active Substance: CYTARABINE\DAUNORUBICIN
     Dosage: 600 UNIT
     Dates: start: 20170727, end: 20170731

REACTIONS (3)
  - Lymphopenia [Recovered/Resolved with Sequelae]
  - Neutropenia [Recovered/Resolved with Sequelae]
  - Febrile neutropenia [Recovered/Resolved with Sequelae]

NARRATIVE: CASE EVENT DATE: 20170731
